FAERS Safety Report 22108741 (Version 6)
Quarter: 2023Q2

REPORT INFORMATION
  Report Type: Report from Study
  Country: US (occurrence: US)
  Receive Date: 20230317
  Receipt Date: 20230502
  Transmission Date: 20230721
  Serious: Yes (Hospitalization)
  Sender: FDA-Public Use
  Company Number: US-PFIZER INC-PV202300044898

PATIENT
  Age: 67 Year
  Sex: Female
  Weight: 97.6 kg

DRUGS (4)
  1. TALAZOPARIB [Suspect]
     Active Substance: TALAZOPARIB
     Indication: Breast cancer
     Dosage: 1 MG, CYCLIC, DAILY
     Route: 048
     Dates: start: 20220128, end: 20220420
  2. TALAZOPARIB [Suspect]
     Active Substance: TALAZOPARIB
     Dosage: 0.5 MG, DAILY(C6D1)
     Route: 048
     Dates: start: 20220707, end: 20230303
  3. GEDATOLISIB [Suspect]
     Active Substance: GEDATOLISIB
     Indication: Breast cancer
     Dosage: D1
     Route: 042
     Dates: start: 20220128, end: 20220616
  4. GEDATOLISIB [Suspect]
     Active Substance: GEDATOLISIB
     Dosage: C6D1, WEEKLY
     Route: 042
     Dates: start: 20220707, end: 20230304

REACTIONS (2)
  - Sepsis [Recovered/Resolved]
  - Cellulitis [Recovered/Resolved]

NARRATIVE: CASE EVENT DATE: 20230305
